FAERS Safety Report 7729988-8 (Version None)
Quarter: 2011Q3

REPORT INFORMATION
  Report Type: 
  Country: None (occurrence: None)
  Receive Date: 20110906
  Receipt Date: 20110824
  Transmission Date: 20111222
  Serious: Yes (Other)
  Sender: FDA-Public Use
  Company Number: PHFR2011GB03009

PATIENT
  Sex: Male
  Weight: 76 kg

DRUGS (5)
  1. HYOSCINE HYDROBROMIDE [Concomitant]
     Indication: SALIVARY HYPERSECRETION
     Dosage: 300 UG/DAY
     Route: 048
  2. HALOPERIDOL [Suspect]
     Indication: PSYCHOTIC DISORDER
     Dosage: 10 MG, PRN
  3. CLOZAPINE [Suspect]
     Dosage: 400 MG/DAY
     Route: 048
     Dates: start: 20110126
  4. LORAZEPAM [Suspect]
     Indication: AGITATION
     Dosage: 3 MG/DAY
     Route: 048
  5. VALPROATE SODIUM [Suspect]
     Indication: AFFECTIVE DISORDER
     Dosage: 1000 MG/DAY
     Route: 048

REACTIONS (3)
  - BLOOD THYROID STIMULATING HORMONE INCREASED [None]
  - EOSINOPHIL COUNT INCREASED [None]
  - HYPOTHYROIDISM [None]
